FAERS Safety Report 17909488 (Version 2)
Quarter: 2020Q2

REPORT INFORMATION
  Report Type: Report from Study
  Country: None (occurrence: DE)
  Receive Date: 20200617
  Receipt Date: 20200630
  Transmission Date: 20200714
  Serious: Yes (Hospitalization)
  Sender: FDA-Public Use
  Company Number: DE-ABBVIE-20P-062-3437476-00

PATIENT
  Age: 78 Year
  Sex: Female

DRUGS (24)
  1. TAVEGIL [Concomitant]
     Active Substance: CLEMASTINE FUMARATE
     Indication: INSOMNIA
     Route: 048
     Dates: start: 201908
  2. VENETOCLAX. [Suspect]
     Active Substance: VENETOCLAX
     Route: 048
     Dates: start: 20200508, end: 20200511
  3. ZOFRAN [Concomitant]
     Active Substance: ONDANSETRON HYDROCHLORIDE
     Indication: NAUSEA
     Route: 048
     Dates: start: 20200121
  4. VENETOCLAX. [Suspect]
     Active Substance: VENETOCLAX
     Route: 048
     Dates: start: 20200124, end: 20200320
  5. ALVOCIDIB [Suspect]
     Active Substance: ALVOCIDIB
     Dosage: ON DAYS 1-3; CYCLE=28 DAYS
     Route: 042
     Dates: start: 20200415
  6. AMOXICLAV [Concomitant]
     Active Substance: AMOXICILLIN\CLAVULANATE POTASSIUM
     Indication: INFECTION PROPHYLAXIS
     Route: 048
     Dates: start: 201703
  7. L-TYHROXIN [Concomitant]
     Indication: HYPOTHYROIDISM
     Route: 048
  8. ZOPICLON [Concomitant]
     Active Substance: ZOPICLONE
     Indication: INSOMNIA
     Route: 048
     Dates: start: 201907
  9. VENETOCLAX. [Suspect]
     Active Substance: VENETOCLAX
     Route: 048
     Dates: start: 20200123, end: 20200123
  10. VENETOCLAX. [Suspect]
     Active Substance: VENETOCLAX
     Route: 048
     Dates: start: 20200323, end: 20200409
  11. ALLOPURINOL. [Concomitant]
     Active Substance: ALLOPURINOL
     Indication: PROPHYLAXIS
     Route: 048
     Dates: start: 20200120, end: 20200125
  12. FOSRENOL [Concomitant]
     Active Substance: LANTHANUM CARBONATE
     Indication: PROPHYLAXIS
     Route: 048
     Dates: start: 20200120, end: 20200125
  13. VENETOCLAX. [Suspect]
     Active Substance: VENETOCLAX
     Route: 048
     Dates: start: 20200122, end: 20200122
  14. VENETOCLAX. [Suspect]
     Active Substance: VENETOCLAX
     Route: 048
     Dates: start: 20200513
  15. COTRIM FORTE [Concomitant]
     Active Substance: SULFAMETHOXAZOLE\TRIMETHOPRIM
     Dosage: BID ON THE WEEKEND
     Route: 048
     Dates: start: 201703
  16. VALSARTAN. [Concomitant]
     Active Substance: VALSARTAN
     Indication: HYPERTENSION
     Dosage: 1-0-0,5
     Route: 048
  17. ALVOCIDIB [Suspect]
     Active Substance: ALVOCIDIB
     Indication: ACUTE MYELOID LEUKAEMIA
     Dosage: CYCLE 1 DAY 1
     Route: 042
     Dates: start: 20200121, end: 20200121
  18. MIRTAZAPIN [Concomitant]
     Active Substance: MIRTAZAPINE
     Indication: INSOMNIA
     Route: 048
     Dates: start: 20200120
  19. VENETOCLAX. [Suspect]
     Active Substance: VENETOCLAX
     Route: 048
     Dates: start: 20200411, end: 20200506
  20. ALVOCIDIB [Suspect]
     Active Substance: ALVOCIDIB
     Dosage: CYCLE 1 DAY 3 TO CYCLE 3 DAY 3
     Route: 042
     Dates: start: 20200123, end: 20200319
  21. COTRIM FORTE [Concomitant]
     Active Substance: SULFAMETHOXAZOLE\TRIMETHOPRIM
     Indication: INFECTION PROPHYLAXIS
     Route: 042
     Dates: start: 20200125, end: 20200126
  22. VENETOCLAX. [Suspect]
     Active Substance: VENETOCLAX
     Indication: ACUTE MYELOID LEUKAEMIA
     Route: 048
     Dates: start: 20200121, end: 20200121
  23. ALVOCIDIB [Suspect]
     Active Substance: ALVOCIDIB
     Dosage: CYCLE 1 DAY 2
     Route: 042
     Dates: start: 20200122, end: 20200122
  24. NORMAL SALINE [Concomitant]
     Active Substance: SODIUM CHLORIDE
     Indication: PROPHYLAXIS
     Route: 042
     Dates: start: 20200120, end: 20200126

REACTIONS (3)
  - Pneumonitis [Not Recovered/Not Resolved]
  - Vomiting [Not Recovered/Not Resolved]
  - Diarrhoea [Not Recovered/Not Resolved]

NARRATIVE: CASE EVENT DATE: 20200609
